FAERS Safety Report 19820248 (Version 1)
Quarter: 2021Q3

REPORT INFORMATION
  Report Type: Spontaneous
  Country: US (occurrence: US)
  Receive Date: 20210910
  Receipt Date: 20210910
  Transmission Date: 20211014
  Serious: Yes (Death)
  Sender: FDA-Public Use
  Company Number: None

PATIENT
  Age: 71 Year
  Sex: Female
  Weight: 58.5 kg

DRUGS (5)
  1. CASIRIVIMAB?IMDEVIMAB [Suspect]
     Active Substance: CASIRIVIMAB\IMDEVIMAB
     Indication: COVID-19
     Dosage: ?          OTHER FREQUENCY:ONCE;?
     Route: 058
     Dates: start: 20210902, end: 20210902
  2. LEVOTHYROXINE 75MCG TABLETS [Concomitant]
     Active Substance: LEVOTHYROXINE
     Dates: start: 20210707
  3. CARVEDILOL 3.125MG TABLETS [Concomitant]
     Dates: start: 20210127
  4. LOSARTAN 25MG TABLETS [Concomitant]
     Active Substance: LOSARTAN POTASSIUM
     Dates: start: 20210123
  5. MIDODRINE 10MG TABLETS [Concomitant]
     Dates: start: 20210202

REACTIONS (4)
  - Acute myocardial infarction [None]
  - Pulmonary embolism [None]
  - COVID-19 pneumonia [None]
  - Cardiac failure congestive [None]

NARRATIVE: CASE EVENT DATE: 20210902
